FAERS Safety Report 4641928-7 (Version None)
Quarter: 2005Q2

REPORT INFORMATION
  Report Type: 
  Country: None (occurrence: None)
  Receive Date: 20050420
  Receipt Date: 20050412
  Transmission Date: 20051028
  Serious: Yes (Death, Other)
  Sender: FDA-Public Use
  Company Number: USA-2005-0019300

PATIENT
  Age: 42 Year
  Sex: Male

DRUGS (4)
  1. OXYCONTIN [Suspect]
  2. OXYMORPHONE HYDROCHLORIDE [Suspect]
  3. VENLAFAXINE HCL [Suspect]
  4. ETHANOL (ETHANOL) [Suspect]

REACTIONS (9)
  - ACCIDENTAL DEATH [None]
  - CARDIOMEGALY [None]
  - COMA [None]
  - DRUG SCREEN POSITIVE [None]
  - DRUG TOXICITY [None]
  - HEPATIC CIRRHOSIS [None]
  - MULTIPLE DRUG OVERDOSE [None]
  - PULMONARY CONGESTION [None]
  - SPLEEN CONGESTION [None]
